FAERS Safety Report 10245536 (Version 2)
Quarter: 2015Q2

REPORT INFORMATION
  Report Type: Spontaneous
  Country: PL (occurrence: PL)
  Receive Date: 20140619
  Receipt Date: 20150626
  Transmission Date: 20150821
  Serious: Yes (Hospitalization)
  Sender: FDA-Public Use
  Company Number: PL-UCBSA-2014002070

PATIENT
  Age: 62 Year
  Sex: Female

DRUGS (3)
  1. CIMZIA [Suspect]
     Active Substance: CERTOLIZUMAB PEGOL
     Indication: RHEUMATOID ARTHRITIS
     Dosage: 400 MG, EV 2 WEEKS(QOW)
     Route: 058
     Dates: start: 20140428, end: 20140512
  2. POLTRAM [Concomitant]
     Indication: RHEUMATOID ARTHRITIS
     Dosage: DAILY DOSE: 500MG
  3. METYPRED [Concomitant]
     Active Substance: METHYLPREDNISOLONE
     Indication: RHEUMATOID ARTHRITIS
     Dosage: DAILY DOSE: 6MG

REACTIONS (2)
  - Skin lesion [Recovered/Resolved]
  - Erysipelas [Recovered/Resolved]

NARRATIVE: CASE EVENT DATE: 20140518
